FAERS Safety Report 26169884 (Version 1)
Quarter: 2025Q4

REPORT INFORMATION
  Report Type: Spontaneous
  Country: US (occurrence: US)
  Receive Date: 20251217
  Receipt Date: 20251217
  Transmission Date: 20260118
  Serious: Yes (Other)
  Sender: Otter
  Company Number: US-OTTER-US-2025AST000522

PATIENT
  Sex: Female

DRUGS (1)
  1. METHOTREXATE [Suspect]
     Active Substance: METHOTREXATE
     Indication: Keratoacanthoma
     Dosage: UNK, UNK
     Route: 026

REACTIONS (4)
  - Toxicity to various agents [Recovered/Resolved]
  - Mucocutaneous ulceration [Recovered/Resolved]
  - Pancytopenia [Recovered/Resolved]
  - Off label use [Unknown]
